FAERS Safety Report 9031718 (Version 2)
Quarter: 2013Q2

REPORT INFORMATION
  Report Type: Spontaneous
  Country: US (occurrence: US)
  Receive Date: 20130124
  Receipt Date: 20130418
  Transmission Date: 20140414
  Serious: Yes (Other)
  Sender: FDA-Public Use
  Company Number: US-PFIZER INC-2013028730

PATIENT
  Age: 39 Year
  Sex: Female
  Weight: 48.98 kg

DRUGS (2)
  1. NEURONTIN [Suspect]
     Indication: BLADDER PAIN
     Dosage: UNK
  2. NEURONTIN [Suspect]
     Dosage: UNK

REACTIONS (5)
  - Loss of consciousness [Unknown]
  - Brain injury [Unknown]
  - Impaired gastric emptying [Unknown]
  - Fall [Unknown]
  - Off label use [Unknown]
